FAERS Safety Report 14505023 (Version 1)
Quarter: 2018Q1

REPORT INFORMATION
  Report Type: Report from Study
  Country: US (occurrence: US)
  Receive Date: 20180208
  Receipt Date: 20180208
  Transmission Date: 20180509
  Serious: Yes (Hospitalization, Other)
  Sender: FDA-Public Use
  Company Number: US-BAYER-2017-248511

PATIENT
  Age: 57 Year
  Sex: Male

DRUGS (4)
  1. NEXAVAR [Suspect]
     Active Substance: SORAFENIB
     Indication: HEPATOCELLULAR CARCINOMA
     Dosage: 200 MG, BID
     Route: 048
     Dates: start: 20171215
  2. GABAPENTIN. [Concomitant]
     Active Substance: GABAPENTIN
  3. PREDNISONE. [Concomitant]
     Active Substance: PREDNISONE
  4. NEXAVAR [Suspect]
     Active Substance: SORAFENIB
     Indication: HEPATOCELLULAR CARCINOMA
     Dosage: 200 MG, BID
     Route: 048
     Dates: start: 20171129, end: 20171213

REACTIONS (13)
  - Hypertension [None]
  - Off label use [None]
  - Peripheral swelling [None]
  - Abdominal pain [Recovering/Resolving]
  - Metastases to adrenals [None]
  - Dyskinesia [None]
  - Muscular weakness [None]
  - Joint swelling [None]
  - Fatigue [Recovering/Resolving]
  - Fall [None]
  - Exercise tolerance decreased [Recovering/Resolving]
  - Abdominal distension [Recovering/Resolving]
  - Respiratory syncytial virus infection [None]

NARRATIVE: CASE EVENT DATE: 2017
